FAERS Safety Report 18816654 (Version 1)
Quarter: 2021Q1

REPORT INFORMATION
  Report Type: Report from Study
  Country: CA (occurrence: CA)
  Receive Date: 20210201
  Receipt Date: 20210201
  Transmission Date: 20210419
  Serious: Yes (Other)
  Sender: FDA-Public Use
  Company Number: CA-GLAXOSMITHKLINE-CA2021AMR019190

PATIENT
  Sex: Male

DRUGS (1)
  1. MEPOLIZUMAB [Suspect]
     Active Substance: MEPOLIZUMAB
     Indication: ASTHMA
     Dosage: 100 MG, Z (MONTHLY)
     Route: 042
     Dates: start: 20200716

REACTIONS (7)
  - Angina pectoris [Unknown]
  - Underdose [Unknown]
  - Chest discomfort [Unknown]
  - Accidental exposure to product [Unknown]
  - Pain in extremity [Unknown]
  - Weight increased [Unknown]
  - Wrong technique in device usage process [Unknown]
